FAERS Safety Report 17414384 (Version 3)
Quarter: 2022Q2

REPORT INFORMATION
  Report Type: Spontaneous
  Country: US (occurrence: US)
  Receive Date: 20200213
  Receipt Date: 20220523
  Transmission Date: 20220721
  Serious: No
  Sender: FDA-Public Use
  Company Number: US-PFIZER INC-2020061007

PATIENT
  Age: 75 Year
  Sex: Female

DRUGS (1)
  1. LIOTHYRONINE SODIUM [Suspect]
     Active Substance: LIOTHYRONINE SODIUM
     Dosage: UNK

REACTIONS (5)
  - Depression [Unknown]
  - Rash [Unknown]
  - Drug hypersensitivity [Unknown]
  - Discomfort [Unknown]
  - Pain [Unknown]
